FAERS Safety Report 13789352 (Version 6)
Quarter: 2018Q2

REPORT INFORMATION
  Report Type: Spontaneous
  Country: US (occurrence: US)
  Receive Date: 20170725
  Receipt Date: 20180416
  Transmission Date: 20180711
  Serious: Yes (Other)
  Sender: FDA-Public Use
  Company Number: PHEH2017US022884

PATIENT
  Sex: Female
  Weight: 44.44 kg

DRUGS (6)
  1. ZOFRAN [Suspect]
     Active Substance: ONDANSETRON HYDROCHLORIDE
     Indication: VOMITING IN PREGNANCY
     Dosage: 4 MG PER 02 ML, Q6H
     Route: 042
  2. ONDANSETRON AUROBINDO [Suspect]
     Active Substance: ONDANSETRON HYDROCHLORIDE
     Indication: VOMITING IN PREGNANCY
     Dosage: 8 MG, Q6H
     Route: 065
     Dates: start: 20130703
  3. ONDANSETRONE RANBAXY [Suspect]
     Active Substance: ONDANSETRON HYDROCHLORIDE
     Indication: VOMITING IN PREGNANCY
     Dosage: 4 MG, TID
     Route: 065
     Dates: start: 20130626
  4. ONDANSETRON [Suspect]
     Active Substance: ONDANSETRON
     Indication: VOMITING IN PREGNANCY
     Dosage: 4 MG, TID
     Route: 065
     Dates: start: 20130523
  5. ONDANSETRON AUROBINDO [Suspect]
     Active Substance: ONDANSETRON HYDROCHLORIDE
     Dosage: 4 MG, Q6H
     Route: 065
     Dates: start: 20130809
  6. ZOFRAN ODT [Suspect]
     Active Substance: ONDANSETRON HYDROCHLORIDE
     Indication: VOMITING IN PREGNANCY
     Dosage: 4 MG, Q6H
     Route: 048

REACTIONS (12)
  - Urinary tract infection [Unknown]
  - Chlamydial infection [Unknown]
  - Cystitis [Unknown]
  - Micturition urgency [Unknown]
  - Gestational hypertension [Unknown]
  - Product use in unapproved indication [Unknown]
  - Gonorrhoea [Unknown]
  - Injury [Unknown]
  - Maternal exposure during pregnancy [Unknown]
  - Abdominal pain [Unknown]
  - Back pain [Unknown]
  - Emotional distress [Unknown]
